FAERS Safety Report 16540208 (Version 2)
Quarter: 2019Q3

REPORT INFORMATION
  Report Type: Spontaneous
  Country: PT (occurrence: PT)
  Receive Date: 20190708
  Receipt Date: 20190723
  Transmission Date: 20191004
  Serious: Yes (Life-Threatening, Hospitalization, Other)
  Sender: FDA-Public Use
  Company Number: PT-MYLANLABS-2019M1061747

PATIENT
  Age: 62 Year
  Sex: Male

DRUGS (12)
  1. CARBAMAZEPINE. [Suspect]
     Active Substance: CARBAMAZEPINE
     Indication: EPILEPSY
  2. PHENYTOIN. [Suspect]
     Active Substance: PHENYTOIN
     Indication: BEHAVIOUR DISORDER
     Dosage: 100 MG, BID
  3. CARBAMAZEPINE. [Suspect]
     Active Substance: CARBAMAZEPINE
     Indication: ALCOHOLISM
     Dosage: 400 MILLIGRAM, QD
  4. DIAZEPAM. [Suspect]
     Active Substance: DIAZEPAM
     Indication: BEHAVIOUR DISORDER
     Dosage: 10 MILLIGRAM
     Route: 042
  5. PHENYTOIN. [Suspect]
     Active Substance: PHENYTOIN
     Indication: ALCOHOLISM
     Dosage: 100 MILLIGRAM, QD
  6. DIAZEPAM. [Suspect]
     Active Substance: DIAZEPAM
     Indication: EPILEPSY
     Dosage: 10 MILLIGRAM, QD
  7. TIAPRIDE HYDROCHLORIDE [Suspect]
     Active Substance: TIAPRIDE HYDROCHLORIDE
     Indication: ALCOHOLISM
     Dosage: 100 MILLIGRAM, QD
  8. DIAZEPAM. [Suspect]
     Active Substance: DIAZEPAM
     Indication: ALCOHOLISM
     Dosage: 10 MG, TID
  9. TIAPRIDE HYDROCHLORIDE [Suspect]
     Active Substance: TIAPRIDE HYDROCHLORIDE
     Indication: BEHAVIOUR DISORDER
     Dosage: 100 MG, BID
  10. PHENYTOIN. [Suspect]
     Active Substance: PHENYTOIN
     Indication: EPILEPSY
  11. CARBAMAZEPINE. [Suspect]
     Active Substance: CARBAMAZEPINE
     Indication: BEHAVIOUR DISORDER
     Dosage: 400 MG, BID
  12. TIAPRIDE HYDROCHLORIDE [Suspect]
     Active Substance: TIAPRIDE HYDROCHLORIDE
     Indication: EPILEPSY

REACTIONS (16)
  - Leukocytosis [Unknown]
  - Toxicity to various agents [Unknown]
  - Atrophy [Unknown]
  - Enzyme level increased [Unknown]
  - Musculoskeletal stiffness [Recovered/Resolved]
  - Muscle rigidity [Unknown]
  - Dystonia [Unknown]
  - Dyskinesia [Unknown]
  - Gait disturbance [Unknown]
  - Altered state of consciousness [Recovering/Resolving]
  - Neuroleptic malignant syndrome [Recovered/Resolved]
  - Rhabdomyolysis [Recovered/Resolved]
  - Myoclonus [Recovering/Resolving]
  - Renal disorder [Recovered/Resolved]
  - Drug abuse [Unknown]
  - Overdose [Unknown]
